FAERS Safety Report 4367513-2 (Version None)
Quarter: 2004Q2

REPORT INFORMATION
  Report Type: 
  Country: None (occurrence: None)
  Receive Date: 20040517
  Receipt Date: 20040428
  Transmission Date: 20050107
  Serious: Yes (Other)
  Sender: FDA-Public Use
  Company Number: 601107

PATIENT
  Age: 4 Year
  Sex: Male

DRUGS (6)
  1. FEIBA VH IMMUNO [Suspect]
     Indication: FACTOR VIII DEFICIENCY
     Dosage: INTRAVENOUS
     Route: 042
     Dates: start: 20020702, end: 20030421
  2. FEIBA VH IMMUNO [Suspect]
     Indication: FACTOR VIII INHIBITION
     Dosage: INTRAVENOUS
     Route: 042
     Dates: start: 20020702, end: 20030421
  3. FEIBA VH IMMUNO [Suspect]
  4. FEIBA VH IMMUNO [Suspect]
  5. FEIBA VH IMMUNO [Suspect]
  6. NOVOSEVEN [Concomitant]

REACTIONS (2)
  - ANTI FACTOR VIII ANTIBODY POSITIVE [None]
  - CONDITION AGGRAVATED [None]
